FAERS Safety Report 25129800 (Version 1)
Quarter: 2025Q1

REPORT INFORMATION
  Report Type: Spontaneous
  Country: US (occurrence: None)
  Receive Date: 20250326
  Receipt Date: 20250326
  Transmission Date: 20250408
  Serious: Yes (Other)
  Sender: FDA-CTU
  Company Number: None

PATIENT
  Sex: Female
  Weight: 54 kg

DRUGS (7)
  1. SPRAVATO [Suspect]
     Active Substance: ESKETAMINE
     Indication: Depression
  2. Hetlioc liquid [Concomitant]
  3. VYEPTI [Concomitant]
     Active Substance: EPTINEZUMAB-JJMR
  4. RECLAST [Concomitant]
     Active Substance: ZOLEDRONIC ACID
  5. PROTONIX [Concomitant]
     Active Substance: PANTOPRAZOLE SODIUM
  6. UNSPECIFIED INGREDIENT [Concomitant]
     Active Substance: UNSPECIFIED INGREDIENT
  7. IBUPROFEN [Concomitant]
     Active Substance: IBUPROFEN

REACTIONS (6)
  - Insomnia [None]
  - Weight decreased [None]
  - Decreased appetite [None]
  - Impaired work ability [None]
  - Urinary tract infection [None]
  - Fatigue [None]
